FAERS Safety Report 7573975-X (Version None)
Quarter: 2011Q2

REPORT INFORMATION
  Report Type: 
  Country: None (occurrence: None)
  Receive Date: 20110627
  Receipt Date: 20110621
  Transmission Date: 20111010
  Serious: Yes (Other)
  Sender: FDA-Public Use
  Company Number: US-TEVA-287387USA

PATIENT
  Sex: Female

DRUGS (1)
  1. LEVETIRACETAM [Suspect]
     Dates: start: 20110201

REACTIONS (3)
  - WEIGHT DECREASED [None]
  - LOSS OF CONSCIOUSNESS [None]
  - FATIGUE [None]
